FAERS Safety Report 8434234-6 (Version None)
Quarter: 2012Q2

REPORT INFORMATION
  Report Type: 
  Country: None (occurrence: None)
  Receive Date: 20120613
  Receipt Date: 20120524
  Transmission Date: 20120825
  Serious: Yes (Other)
  Sender: FDA-Public Use
  Company Number: IT-BAXTER-2012BAX006878

PATIENT
  Age: 48 Year
  Sex: Female

DRUGS (2)
  1. MESNA [Concomitant]
     Indication: PROPHYLAXIS
  2. IFOSFAMIDE [Suspect]

REACTIONS (2)
  - FANCONI SYNDROME [None]
  - NEPHROGENIC DIABETES INSIPIDUS [None]
